FAERS Safety Report 7444654-4 (Version None)
Quarter: 2011Q2

REPORT INFORMATION
  Report Type: 
  Country: None (occurrence: None)
  Receive Date: 20110429
  Receipt Date: 20110426
  Transmission Date: 20111010
  Serious: Yes (Death, Other)
  Sender: FDA-Public Use
  Company Number: US-PFIZER INC-2010152252

PATIENT
  Sex: Male

DRUGS (2)
  1. FELODIPINE [Concomitant]
     Indication: HYPERTENSION
     Dosage: UNK
     Dates: start: 20090101, end: 20090601
  2. CHANTIX [Suspect]
     Indication: SMOKING CESSATION THERAPY
     Dosage: 1 MG/ DAY
     Dates: start: 20090301, end: 20090401

REACTIONS (6)
  - DEPRESSION [None]
  - AGITATION [None]
  - COMPLETED SUICIDE [None]
  - ANXIETY [None]
  - INSOMNIA [None]
  - RESTLESSNESS [None]
